FAERS Safety Report 5414856-7 (Version None)
Quarter: 2007Q3

REPORT INFORMATION
  Report Type: 
  Country: None (occurrence: None)
  Receive Date: 20070815
  Receipt Date: 20070810
  Transmission Date: 20080115
  Serious: Yes (Other)
  Sender: FDA-Public Use
  Company Number: PHNU2007DE02812

PATIENT
  Age: 64 Year
  Sex: Female

DRUGS (5)
  1. ZOMETA [Suspect]
     Indication: METASTASES TO BONE
     Dosage: 4 MG, QD
     Route: 042
     Dates: start: 20040901
  2. CLINDAMYCIN HCL [Concomitant]
     Route: 065
  3. QUINAPRIL HCL [Concomitant]
     Route: 065
  4. HYDROCHLOROTHIAZIDE [Concomitant]
     Route: 065
  5. RANTUDIL [Concomitant]
     Route: 065

REACTIONS (10)
  - BONE DISORDER [None]
  - BONE LESION [None]
  - EXCESSIVE GRANULATION TISSUE [None]
  - HISTOLOGY ABNORMAL [None]
  - IMPAIRED HEALING [None]
  - INFLAMMATION [None]
  - ORAL SURGERY [None]
  - OSTEONECROSIS [None]
  - TOOTH EXTRACTION [None]
  - X-RAY DENTAL [None]
